FAERS Safety Report 4305987-3 (Version None)
Quarter: 2004Q1

REPORT INFORMATION
  Report Type: 
  Country: None (occurrence: None)
  Receive Date: 20040225
  Receipt Date: 20040217
  Transmission Date: 20041129
  Serious: Yes (Other)
  Sender: FDA-Public Use
  Company Number: 2004198887JP

PATIENT
  Age: 33 Year
  Sex: Male

DRUGS (2)
  1. LINCOCIN [Suspect]
     Dosage: 600 MG, DAILY, IV
     Route: 042
     Dates: start: 20020601
  2. CLARITHROMYCIN [Concomitant]

REACTIONS (2)
  - LIVER DISORDER [None]
  - TOXIC EPIDERMAL NECROLYSIS [None]
